FAERS Safety Report 12749851 (Version 3)
Quarter: 2017Q2

REPORT INFORMATION
  Report Type: Spontaneous
  Country: US (occurrence: US)
  Receive Date: 20160916
  Receipt Date: 20170601
  Transmission Date: 20170830
  Serious: Yes (Hospitalization, Other)
  Sender: FDA-Public Use
  Company Number: US-GLAXOSMITHKLINE-US2016GSK135187

PATIENT
  Sex: Male
  Weight: 136.5 kg

DRUGS (4)
  1. CARVEDILOL. [Suspect]
     Active Substance: CARVEDILOL
     Indication: HYPERTENSION
     Dosage: 12.5 MG, QD
     Route: 048
  2. CARVEDILOL. [Suspect]
     Active Substance: CARVEDILOL
     Dosage: 25 MG, QD
     Dates: start: 201603
  3. REGRANEX [Suspect]
     Active Substance: BECAPLERMIN
     Indication: DIABETIC ULCER
     Dosage: UNK, BID
     Dates: start: 201606
  4. LISINOPRIL. [Suspect]
     Active Substance: LISINOPRIL
     Indication: HYPERTENSION
     Dosage: 20 MG, QD
     Dates: end: 20160819

REACTIONS (29)
  - Diabetic neuropathy [Unknown]
  - Diabetic foot [Unknown]
  - Hypertension [Unknown]
  - Chest discomfort [Unknown]
  - Myocardial infarction [Unknown]
  - Blood pressure diastolic decreased [Unknown]
  - Renal artery stenosis [Unknown]
  - Coronary arterial stent insertion [Unknown]
  - Renal impairment [Unknown]
  - Prostatomegaly [Unknown]
  - Pericardial effusion [Unknown]
  - Staphylococcal infection [Unknown]
  - Diabetes mellitus [Unknown]
  - Drug intolerance [Unknown]
  - Off label use [Unknown]
  - Drug-disease interaction [Unknown]
  - Thrombosis [Unknown]
  - Diabetic ulcer [Unknown]
  - Monoplegia [Unknown]
  - Hypoaesthesia [Unknown]
  - Dehydration [Unknown]
  - Lung disorder [Unknown]
  - Cardiac failure [Unknown]
  - Pulmonary oedema [Unknown]
  - Cardiac failure congestive [Unknown]
  - Renal disorder [Unknown]
  - Suffocation feeling [Unknown]
  - Foot amputation [Unknown]
  - Pleural effusion [Unknown]

NARRATIVE: CASE EVENT DATE: 2013
